FAERS Safety Report 10445739 (Version 1)
Quarter: 2014Q3

REPORT INFORMATION
  Report Type: Spontaneous
  Country: US (occurrence: US)
  Receive Date: 20140910
  Receipt Date: 20140910
  Transmission Date: 20150326
  Serious: Yes (Hospitalization)
  Sender: FDA-Public Use
  Company Number: US-MYLAN-2014M1004159

PATIENT

DRUGS (3)
  1. WARFARIN [Concomitant]
     Active Substance: WARFARIN
     Indication: ANTICOAGULANT THERAPY
     Route: 065
  2. PHENYTOIN. [Suspect]
     Active Substance: PHENYTOIN
     Indication: OVERDOSE
     Route: 048
  3. PHENYTOIN. [Suspect]
     Active Substance: PHENYTOIN
     Indication: OFF LABEL USE

REACTIONS (7)
  - Hypotension [Unknown]
  - Cardiac arrest [Recovering/Resolving]
  - Overdose [Recovering/Resolving]
  - Renal failure acute [Unknown]
  - Metabolic acidosis [Unknown]
  - Coma [Unknown]
  - Bradycardia [Unknown]
